FAERS Safety Report 12768774 (Version 1)
Quarter: 2016Q3

REPORT INFORMATION
  Report Type: Spontaneous
  Country: US (occurrence: US)
  Receive Date: 20160921
  Receipt Date: 20160921
  Transmission Date: 20161109
  Serious: No
  Sender: FDA-Public Use
  Company Number: US-JAZZ-2016-US-010276

PATIENT
  Sex: Female

DRUGS (16)
  1. NAPROXEN. [Concomitant]
     Active Substance: NAPROXEN
  2. METOPROLOL SUCCINATE. [Concomitant]
     Active Substance: METOPROLOL SUCCINATE
  3. VITAMIN C [Concomitant]
     Active Substance: ASCORBIC ACID
  4. CLARITIN [Concomitant]
     Active Substance: LORATADINE
  5. SPIRONOLACTONE. [Concomitant]
     Active Substance: SPIRONOLACTONE
  6. VITAMIN D3 [Concomitant]
     Active Substance: CHOLECALCIFEROL
  7. RANITIDINE. [Concomitant]
     Active Substance: RANITIDINE
  8. TRILEPTAL [Concomitant]
     Active Substance: OXCARBAZEPINE
  9. XYREM [Suspect]
     Active Substance: SODIUM OXYBATE
     Indication: CATAPLEXY
     Dosage: 4.5 G, BID
     Route: 048
     Dates: start: 200710
  10. ATIVAN [Concomitant]
     Active Substance: LORAZEPAM
  11. CYMBALTA [Concomitant]
     Active Substance: DULOXETINE HYDROCHLORIDE
  12. XYREM [Suspect]
     Active Substance: SODIUM OXYBATE
     Indication: NARCOLEPSY
     Dosage: 2.25 G, BID
     Route: 048
     Dates: start: 200708, end: 200710
  13. SUPER B 50 COMPLEX [Concomitant]
  14. CALCIUM +D [Concomitant]
     Active Substance: CALCIUM\VITAMIN D
  15. TYLENOL EXTRA STRENGTH [Concomitant]
     Active Substance: ACETAMINOPHEN
  16. LOSARTAN POTASSIUM. [Concomitant]
     Active Substance: LOSARTAN POTASSIUM

REACTIONS (1)
  - Blood pressure abnormal [Not Recovered/Not Resolved]
